FAERS Safety Report 8541297 (Version 2)
Quarter: 2013Q1

REPORT INFORMATION
  Report Type: Spontaneous
  Country: US (occurrence: US)
  Receive Date: 20120502
  Receipt Date: 20130228
  Transmission Date: 20140127
  Serious: Yes (Hospitalization)
  Sender: FDA-Public Use
  Company Number: US-GLAXOSMITHKLINE-A0813230A

PATIENT
  Age: 48 Year
  Sex: Male

DRUGS (1)
  1. AVANDIA [Suspect]
     Indication: DIABETES MELLITUS
     Dosage: 4MG PER DAY
     Route: 048
     Dates: start: 20070116, end: 20070629

REACTIONS (7)
  - Myocardial infarction [Unknown]
  - Cardiogenic shock [Unknown]
  - Cardiac failure congestive [Unknown]
  - Intracardiac thrombus [Unknown]
  - Mitral valve incompetence [Unknown]
  - Myocardial ischaemia [Unknown]
  - Injury [Unknown]
